FAERS Safety Report 24379972 (Version 1)
Quarter: 2024Q3

REPORT INFORMATION
  Report Type: Spontaneous
  Country: US (occurrence: US)
  Receive Date: 20240930
  Receipt Date: 20240930
  Transmission Date: 20241016
  Serious: No
  Sender: BRISTOL MYERS SQUIBB
  Company Number: US-BRISTOL-MYERS SQUIBB COMPANY-2024-153865

PATIENT
  Age: 45 Year
  Sex: Female

DRUGS (1)
  1. AUGTYRO [Suspect]
     Active Substance: REPOTRECTINIB
     Indication: Product used for unknown indication
     Route: 048
     Dates: start: 20240703

REACTIONS (7)
  - Gait disturbance [Unknown]
  - Hypoaesthesia oral [Unknown]
  - Taste disorder [Recovering/Resolving]
  - Hypoaesthesia [Unknown]
  - Acne [Unknown]
  - Dry skin [Unknown]
  - Hyperkeratosis [Unknown]

NARRATIVE: CASE EVENT DATE: 20240925
